FAERS Safety Report 17321277 (Version 1)
Quarter: 2020Q1

REPORT INFORMATION
  Report Type: Other
  Country: US (occurrence: US)
  Receive Date: 20200126
  Receipt Date: 20200126
  Transmission Date: 20200409
  Serious: No
  Sender: FDA-Public Use
  Company Number: US-ACORDA-ACO_158477_2019

PATIENT
  Age: 55 Year
  Sex: Male

DRUGS (1)
  1. AMPYRA [Suspect]
     Active Substance: DALFAMPRIDINE
     Indication: PRODUCT USED FOR UNKNOWN INDICATION
     Dosage: 10 MILLIGRAM, BID (Q12H)
     Route: 048

REACTIONS (9)
  - Gout [Recovered/Resolved]
  - Depression [Not Recovered/Not Resolved]
  - Anal incontinence [Unknown]
  - Malaise [Unknown]
  - Urine flow decreased [Recovering/Resolving]
  - Extra dose administered [Unknown]
  - Phobia [Not Recovered/Not Resolved]
  - Renal disorder [Recovered/Resolved]
  - Product dose omission [Unknown]

NARRATIVE: CASE EVENT DATE: 201903
